FAERS Safety Report 16874757 (Version 1)
Quarter: 2019Q4

REPORT INFORMATION
  Report Type: Report from Study
  Country: US (occurrence: US)
  Receive Date: 20191001
  Receipt Date: 20191001
  Transmission Date: 20200122
  Serious: Yes (Hospitalization, Other)
  Sender: FDA-Public Use
  Company Number: US-SHIRE-US201931755

PATIENT
  Sex: Female

DRUGS (1)
  1. HUMAN NORMAL IMMUNOGLOBULIN; LIQUID [Suspect]
     Active Substance: HUMAN IMMUNOGLOBULIN G
     Indication: PRIMARY IMMUNODEFICIENCY SYNDROME
     Dosage: 90 GRAM, OVER 2 DAY PERIOD EVERY MONTH
     Route: 042

REACTIONS (3)
  - Osteomyelitis [Recovering/Resolving]
  - Urinary tract infection [Unknown]
  - Bacteraemia [Unknown]
